FAERS Safety Report 18635070 (Version 3)
Quarter: 2021Q1

REPORT INFORMATION
  Report Type: Spontaneous
  Country: FR (occurrence: FR)
  Receive Date: 20201218
  Receipt Date: 20210222
  Transmission Date: 20210419
  Serious: Yes (Other)
  Sender: FDA-Public Use
  Company Number: FR-MYLANLABS-2020M1102035

PATIENT
  Age: 28 Year
  Sex: Male

DRUGS (6)
  1. PARACETAMOL [Suspect]
     Active Substance: ACETAMINOPHEN
     Indication: ERYTHEMA
     Dosage: UNK
     Route: 065
  2. SPIRAMYCIN [Suspect]
     Active Substance: SPIRAMYCIN
     Indication: ERYTHEMA
     Dosage: UNK
     Route: 065
  3. SPIRAMYCIN [Suspect]
     Active Substance: SPIRAMYCIN
     Indication: RASH ERYTHEMATOUS
  4. PARACETAMOL [Suspect]
     Active Substance: ACETAMINOPHEN
     Indication: TONSILLITIS
  5. PARACETAMOL [Suspect]
     Active Substance: ACETAMINOPHEN
     Indication: RASH ERYTHEMATOUS
  6. SPIRAMYCIN [Suspect]
     Active Substance: SPIRAMYCIN
     Indication: TONSILLITIS

REACTIONS (12)
  - Rash erythematous [Unknown]
  - Drug reaction with eosinophilia and systemic symptoms [Unknown]
  - Rash [Unknown]
  - Hyperthermia [Unknown]
  - Rash macular [Unknown]
  - Asthenia [Unknown]
  - Rash maculo-papular [Unknown]
  - Dermatitis exfoliative generalised [Unknown]
  - General physical health deterioration [Unknown]
  - Off label use [Unknown]
  - Pityriasis rosea [Unknown]
  - Lymphadenopathy [Unknown]
